FAERS Safety Report 22397157 (Version 6)
Quarter: 2023Q4

REPORT INFORMATION
  Report Type: Spontaneous
  Country: US (occurrence: US)
  Receive Date: 20230602
  Receipt Date: 20231019
  Transmission Date: 20240110
  Serious: No
  Sender: FDA-Public Use
  Company Number: US-JNJFOC-20230573980

PATIENT
  Age: 71 Year
  Sex: Male

DRUGS (5)
  1. TREMFYA [Suspect]
     Active Substance: GUSELKUMAB
     Indication: Psoriasis
     Route: 065
     Dates: start: 20230326
  2. TOPROL XL [Concomitant]
     Active Substance: METOPROLOL SUCCINATE
  3. WELLBUTRIN XL [Concomitant]
     Active Substance: BUPROPION HYDROCHLORIDE
  4. CITALOPRAM [Concomitant]
     Active Substance: CITALOPRAM HYDROBROMIDE
  5. LOTREL [Concomitant]
     Active Substance: AMLODIPINE BESYLATE\BENAZEPRIL HYDROCHLORIDE

REACTIONS (3)
  - Device issue [Unknown]
  - Inappropriate schedule of product administration [Unknown]
  - Skin disorder [Unknown]

NARRATIVE: CASE EVENT DATE: 20230526
